FAERS Safety Report 10904470 (Version 2)
Quarter: 2015Q1

REPORT INFORMATION
  Report Type: Spontaneous
  Country: FR (occurrence: FR)
  Receive Date: 20150311
  Receipt Date: 20150317
  Transmission Date: 20150721
  Serious: Yes (Hospitalization)
  Sender: FDA-Public Use
  Company Number: FR-ASTRAZENECA-2015SE21637

PATIENT
  Age: 42 Year
  Sex: Male

DRUGS (4)
  1. CREATINE [Concomitant]
     Active Substance: CREATINE
     Indication: MUSCLE BUILDING THERAPY
     Dates: start: 201409
  2. CRESTOR [Suspect]
     Active Substance: ROSUVASTATIN CALCIUM
     Indication: HYPERCHOLESTEROLAEMIA
     Route: 048
     Dates: start: 201108
  3. COAPROVEL [Concomitant]
     Active Substance: HYDROCHLOROTHIAZIDE\IRBESARTAN
     Indication: HYPERTENSION
     Dosage: 300 MG + 12.5 MG
     Dates: start: 201108, end: 201412
  4. PROTEINS [Concomitant]
     Indication: MUSCLE BUILDING THERAPY
     Dates: start: 201409

REACTIONS (3)
  - Device related infection [Unknown]
  - Chronic kidney disease [Not Recovered/Not Resolved]
  - Contraindicated drug administered [Not Recovered/Not Resolved]
